FAERS Safety Report 20830552 (Version 1)
Quarter: 2022Q2

REPORT INFORMATION
  Report Type: Spontaneous
  Country: US (occurrence: US)
  Receive Date: 20220514
  Receipt Date: 20220514
  Transmission Date: 20220721
  Serious: No
  Sender: FDA-Public Use
  Company Number: US-BRISTOL-MYERS SQUIBB COMPANY-2022-037505

PATIENT
  Age: 66 Year
  Sex: Male

DRUGS (1)
  1. REVLIMID [Suspect]
     Active Substance: LENALIDOMIDE
     Indication: Prostatic specific antigen increased
     Dosage: FREQUENCY : TAKE1CAPSULEBYMOUTH EVERYMORNING AT THESAME TIME DAILYFOR 21 DAYS THENOFF FOR 7DAYS
     Route: 048

REACTIONS (2)
  - Product prescribing issue [Unknown]
  - Intentional product use issue [Unknown]
